FAERS Safety Report 18560958 (Version 1)
Quarter: 2020Q4

REPORT INFORMATION
  Report Type: Spontaneous
  Country: DE (occurrence: DE)
  Receive Date: 20201130
  Receipt Date: 20201130
  Transmission Date: 20210114
  Serious: Yes (Hospitalization)
  Sender: FDA-Public Use
  Company Number: DE-ELI_LILLY_AND_COMPANY-DE202011008956

PATIENT
  Age: 15 Year
  Sex: Female
  Weight: 95 kg

DRUGS (3)
  1. METFORMIN [Suspect]
     Active Substance: METFORMIN HYDROCHLORIDE
     Indication: TYPE 1 DIABETES MELLITUS
     Dosage: UNK UNK, BID
     Route: 048
     Dates: start: 201906, end: 201910
  2. LANTUS [Suspect]
     Active Substance: INSULIN GLARGINE
     Indication: TYPE 1 DIABETES MELLITUS
     Dosage: UNK UNK, UNKNOWN
     Route: 058
  3. LIPROLOG LISPRO [Suspect]
     Active Substance: INSULIN LISPRO
     Indication: TYPE 1 DIABETES MELLITUS
     Dosage: UNK UNK, UNKNOWN
     Route: 058

REACTIONS (8)
  - Pain [Unknown]
  - Treatment noncompliance [Unknown]
  - Ketoacidosis [Unknown]
  - Nausea [Unknown]
  - Product dose omission issue [Unknown]
  - Back pain [Unknown]
  - Vomiting [Unknown]
  - Product administration error [Unknown]

NARRATIVE: CASE EVENT DATE: 20191101
